FAERS Safety Report 14586192 (Version 2)
Quarter: 2018Q2

REPORT INFORMATION
  Report Type: Spontaneous
  Country: US (occurrence: US)
  Receive Date: 20180301
  Receipt Date: 20180422
  Transmission Date: 20180711
  Serious: Yes (Hospitalization)
  Sender: FDA-Public Use
  Company Number: US-APOTEX-2018AP007339

PATIENT
  Sex: Male

DRUGS (11)
  1. MYCOPHENOLATE [Suspect]
     Active Substance: MYCOPHENOLIC ACID
     Indication: IMMUNOSUPPRESSION
     Dosage: 10-15 MG/KG/DAY
     Route: 065
  2. TACROLIMUS. [Suspect]
     Active Substance: TACROLIMUS
     Indication: IMMUNOSUPPRESSION
     Dosage: 0.14 MG/KG/DAY
     Route: 048
  3. SIROLIMUS. [Concomitant]
     Active Substance: SIROLIMUS
     Indication: IMMUNOSUPPRESSION
     Dosage: 1 MG/M^2/DAY
     Route: 065
  4. TACROLIMUS. [Suspect]
     Active Substance: TACROLIMUS
     Dosage: 0.077 MG/KG, PER DAY
     Route: 048
  5. CEFDINIR. [Concomitant]
     Active Substance: CEFDINIR
     Indication: SINUSITIS
  6. TACROLIMUS. [Suspect]
     Active Substance: TACROLIMUS
     Dosage: 0.077 MG/KG, PER DAY
     Route: 048
  7. PREDNISOLONE. [Concomitant]
     Active Substance: PREDNISOLONE
     Dosage: 0.36 MG/KG, PER DAY
     Route: 065
  8. PREDNISOLONE. [Concomitant]
     Active Substance: PREDNISOLONE
     Indication: IMMUNOSUPPRESSION
     Dosage: 0.4-0.8 MG/KG/DAY
     Route: 065
  9. CEFDINIR. [Concomitant]
     Active Substance: CEFDINIR
     Indication: OTITIS MEDIA
     Dosage: DAILY
     Route: 065
  10. CEFDINIR. [Concomitant]
     Active Substance: CEFDINIR
     Indication: PROPHYLAXIS
  11. MYCOPHENOLATE [Suspect]
     Active Substance: MYCOPHENOLIC ACID
     Dosage: 15 MG/KG, PER DAY
     Route: 065

REACTIONS (1)
  - Eczema [Recovering/Resolving]
